APPROVED DRUG PRODUCT: DURAGESIC-37
Active Ingredient: FENTANYL
Strength: 37.5MCG/HR **Federal Register determination that product was not discontinued or withdrawn for safety or effectiveness reasons**
Dosage Form/Route: FILM, EXTENDED RELEASE;TRANSDERMAL
Application: N019813 | Product #006
Applicant: JANSSEN PHARMACEUTICALS INC
Approved: Jan 24, 2018 | RLD: Yes | RS: No | Type: DISCN